FAERS Safety Report 8830596 (Version 2)
Quarter: 2013Q1

REPORT INFORMATION
  Report Type: Spontaneous
  Country: GB (occurrence: None)
  Receive Date: 20121004
  Receipt Date: 20121019
  Transmission Date: 20140127
  Serious: Yes (Disabling)
  Sender: FDA-Public Use
  Company Number: AUR-APL-2012-04132

PATIENT
  Age: 59 Year
  Sex: Female

DRUGS (1)
  1. MIRTAZAPINE (MIRTAZAPINE) [Suspect]
     Indication: DEPRESSION

REACTIONS (10)
  - Lymphoedema [None]
  - Weight increased [None]
  - Local swelling [None]
  - Joint swelling [None]
  - Depression [None]
  - Local swelling [None]
  - Pain in extremity [None]
  - Musculoskeletal stiffness [None]
  - Drug ineffective [None]
  - Depression [None]
